FAERS Safety Report 23396382 (Version 2)
Quarter: 2024Q1

REPORT INFORMATION
  Report Type: Spontaneous
  Country: US (occurrence: US)
  Receive Date: 20240112
  Receipt Date: 20240119
  Transmission Date: 20240410
  Serious: No
  Sender: FDA-Public Use
  Company Number: US-JNJFOC-20240116686

PATIENT
  Age: 57 Year
  Sex: Female

DRUGS (4)
  1. TYLENOL [Suspect]
     Active Substance: ACETAMINOPHEN
     Indication: Headache
     Route: 065
     Dates: start: 202401
  2. UPTRAVI [Concomitant]
     Active Substance: SELEXIPAG
     Indication: Pulmonary arterial hypertension
     Dosage: 1200MCG IN THE MORNING AND 1400MCG IN THE EVENING
     Route: 048
     Dates: start: 20240101
  3. UPTRAVI [Concomitant]
     Active Substance: SELEXIPAG
     Route: 048
     Dates: start: 202303
  4. UPTRAVI [Concomitant]
     Active Substance: SELEXIPAG
     Route: 048
     Dates: start: 202303

REACTIONS (1)
  - Drug ineffective [Unknown]

NARRATIVE: CASE EVENT DATE: 20240101
